FAERS Safety Report 11078638 (Version 4)
Quarter: 2015Q3

REPORT INFORMATION
  Report Type: Spontaneous
  Country: US (occurrence: US)
  Receive Date: 20150430
  Receipt Date: 20150817
  Transmission Date: 20151125
  Serious: Yes (Death, Other)
  Sender: FDA-Public Use
  Company Number: US-ASTRAZENECA-2013SE64987

PATIENT
  Age: 26754 Day
  Sex: Female
  Weight: 44.9 kg

DRUGS (53)
  1. NEXIUM [Concomitant]
     Active Substance: ESOMEPRAZOLE MAGNESIUM
     Route: 048
     Dates: start: 20070724
  2. FLUCONAZOLE. [Concomitant]
     Active Substance: FLUCONAZOLE
     Dates: start: 20070423
  3. PROTONIX [Concomitant]
     Active Substance: PANTOPRAZOLE SODIUM
     Route: 065
  4. NARCAN [Concomitant]
     Active Substance: NALOXONE HYDROCHLORIDE
     Dates: start: 20090914
  5. LIPITOR [Concomitant]
     Active Substance: ATORVASTATIN CALCIUM
     Dates: start: 20040512
  6. BYETTA [Suspect]
     Active Substance: EXENATIDE
     Indication: TYPE 2 DIABETES MELLITUS
     Dosage: UNK
     Route: 065
     Dates: start: 2005, end: 2007
  7. ULTRAM [Concomitant]
     Active Substance: TRAMADOL HYDROCHLORIDE
     Route: 048
     Dates: start: 20110801
  8. VITAMIN D [Concomitant]
     Active Substance: CHOLECALCIFEROL
     Dosage: 5000 UNITS, EVERY DAY
     Route: 048
     Dates: start: 20110801
  9. ZETIA [Concomitant]
     Active Substance: EZETIMIBE
     Route: 048
     Dates: start: 20070725
  10. PROMETHAZINE [Concomitant]
     Active Substance: PROMETHAZINE\PROMETHAZINE HYDROCHLORIDE
     Dates: start: 20110703
  11. MILK OF MAGNESIA [Concomitant]
     Active Substance: MAGNESIUM HYDROXIDE
     Route: 048
     Dates: start: 20090919
  12. CEPACOL [Concomitant]
     Active Substance: BENZOCAINE
     Route: 048
     Dates: start: 20090912
  13. COMPAZINE/ PROCHLORPERAZINE [Concomitant]
     Dates: start: 20090914
  14. GLUCAGON. [Concomitant]
     Active Substance: GLUCAGON
     Route: 058
     Dates: start: 20090912
  15. AMARYL [Concomitant]
     Active Substance: GLIMEPIRIDE
     Dates: start: 20041205
  16. NITROFURANTOIN. [Concomitant]
     Active Substance: NITROFURANTOIN
     Dates: start: 20070202
  17. IBUPROFEN. [Concomitant]
     Active Substance: IBUPROFEN
  18. ASPIRIN/ ECOTRIN [Concomitant]
     Route: 065
  19. PEPCID [Concomitant]
     Active Substance: FAMOTIDINE
     Dates: start: 20090913
  20. DIPHENHYDRAMINE. [Concomitant]
     Active Substance: DIPHENHYDRAMINE
     Dosage: 25-50 MG, EVERY SIX HOURS
     Dates: start: 20090912
  21. SIMETHICONE (DIMETHICONE) [Concomitant]
     Active Substance: DIMETHICONE
     Dates: start: 20110720
  22. JANUVIA [Suspect]
     Active Substance: SITAGLIPTIN PHOSPHATE
     Indication: TYPE 2 DIABETES MELLITUS
     Route: 048
     Dates: start: 20090213
  23. ALDACTONE [Concomitant]
     Active Substance: SPIRONOLACTONE
     Route: 048
     Dates: start: 20110801
  24. LANTUS [Concomitant]
     Active Substance: INSULIN GLARGINE
     Route: 058
     Dates: start: 20100824
  25. VITAMIN D3 [Concomitant]
     Active Substance: CHOLECALCIFEROL
     Route: 048
     Dates: start: 20090919
  26. EVISTA [Concomitant]
     Active Substance: RALOXIFENE HYDROCHLORIDE
     Dates: start: 20021120
  27. JANUVIA [Suspect]
     Active Substance: SITAGLIPTIN PHOSPHATE
     Indication: TYPE 2 DIABETES MELLITUS
     Route: 048
     Dates: start: 20100125
  28. SYNTHROID/ LEVOXYL [Concomitant]
     Route: 048
     Dates: start: 20070724
  29. ZYRTEC [Concomitant]
     Active Substance: CETIRIZINE HYDROCHLORIDE
     Route: 048
     Dates: start: 20070724
  30. XELODA [Concomitant]
     Active Substance: CAPECITABINE
     Dates: start: 20090403
  31. VALSARTAN/ DIOVAN [Concomitant]
     Route: 048
     Dates: start: 20090919
  32. ATACAND [Concomitant]
     Active Substance: CANDESARTAN CILEXETIL
     Route: 048
  33. FLOMAX [Concomitant]
     Active Substance: TAMSULOSIN HYDROCHLORIDE
     Route: 048
  34. TIAZAC [Concomitant]
     Active Substance: DILTIAZEM HYDROCHLORIDE
     Dates: start: 20021120
  35. DOCUSATE [Concomitant]
     Active Substance: DOCUSATE
     Dosage: EVERY FOUR HOURS
     Route: 048
     Dates: start: 20110719
  36. JANUVIA [Suspect]
     Active Substance: SITAGLIPTIN PHOSPHATE
     Indication: TYPE 2 DIABETES MELLITUS
     Route: 065
     Dates: start: 2007, end: 2010
  37. LASIX [Concomitant]
     Active Substance: FUROSEMIDE
     Route: 048
     Dates: start: 20110801
  38. QUININE SULFATE. [Concomitant]
     Active Substance: QUININE SULFATE
     Route: 048
     Dates: start: 20070524
  39. TYLENOL [Concomitant]
     Active Substance: ACETAMINOPHEN
     Route: 065
  40. LOPRESSOR [Concomitant]
     Active Substance: METOPROLOL TARTRATE
     Dates: start: 20090910
  41. METFORMIN [Concomitant]
     Active Substance: METFORMIN HYDROCHLORIDE
     Dates: start: 20021120
  42. LABETALOL/TRANDATE [Concomitant]
     Dates: start: 20021120
  43. JANUVIA [Suspect]
     Active Substance: SITAGLIPTIN PHOSPHATE
     Indication: TYPE 2 DIABETES MELLITUS
     Route: 048
     Dates: start: 20081007
  44. COZAAR [Concomitant]
     Active Substance: LOSARTAN POTASSIUM
     Route: 048
     Dates: start: 20070724
  45. AMOXICILLIN. [Concomitant]
     Active Substance: AMOXICILLIN
     Dates: start: 20070511
  46. EMEND [Concomitant]
     Active Substance: APREPITANT
     Dates: start: 20081203
  47. PROPOXYPHEN-APAP [Concomitant]
     Dosage: 100-650 MG
     Dates: start: 20100701
  48. LOMOTIL [Concomitant]
     Active Substance: ATROPINE SULFATE\DIPHENOXYLATE HYDROCHLORIDE
     Route: 065
  49. TOLTERODINE TARTRATE. [Concomitant]
     Active Substance: TOLTERODINE TARTRATE
     Dates: start: 201009
  50. HUMALOG [Concomitant]
     Active Substance: INSULIN LISPRO
     Dosage: 100 UNITS/ML
     Dates: start: 20110130
  51. CREON [Concomitant]
     Active Substance: PANCRELIPASE AMYLASE\PANCRELIPASE LIPASE\PANCRELIPASE PROTEASE
     Dosage: 24000 UNITS
     Route: 048
     Dates: start: 20100608
  52. TORADOL [Concomitant]
     Active Substance: KETOROLAC TROMETHAMINE
     Dates: start: 20090916
  53. ONDANSETRON HCL [Concomitant]
     Active Substance: ONDANSETRON HYDROCHLORIDE
     Dosage: 2 MG/ ML
     Dates: start: 20090914

REACTIONS (7)
  - Pancreatitis chronic [Unknown]
  - Metastases to lymph nodes [Unknown]
  - Malignant ascites [Unknown]
  - Cardio-respiratory arrest [Fatal]
  - Metastases to peritoneum [Unknown]
  - Jaundice cholestatic [Unknown]
  - Pancreatic carcinoma metastatic [Fatal]

NARRATIVE: CASE EVENT DATE: 20081005
